FAERS Safety Report 6578862-1 (Version None)
Quarter: 2010Q1

REPORT INFORMATION
  Report Type: 
  Country: None (occurrence: None)
  Receive Date: 20100211
  Receipt Date: 20100129
  Transmission Date: 20100710
  Serious: Yes (Life-Threatening, Hospitalization)
  Sender: FDA-Public Use
  Company Number: DE-MYLANLABS-2009S1014015

PATIENT
  Age: 64 Year
  Sex: Male
  Weight: 69.1 kg

DRUGS (5)
  1. AZATHIOPRINE [Suspect]
     Indication: COLITIS ULCERATIVE
     Route: 048
     Dates: start: 20081201, end: 20090426
  2. CEFTRIAXONE [Suspect]
     Indication: ENCEPHALITIS
     Route: 042
     Dates: start: 20090424, end: 20090429
  3. AMPICILLIN-RATIOPHARM [Suspect]
     Indication: DRUG USE FOR UNKNOWN INDICATION
     Route: 042
     Dates: start: 20090424
  4. PANTOZOL [Concomitant]
     Indication: PROPHYLAXIS AGAINST GASTROINTESTINAL ULCER
     Route: 048
     Dates: start: 20050101
  5. FERRO SANOL /00023503/ [Concomitant]
     Indication: IRON DEFICIENCY
     Route: 048

REACTIONS (2)
  - GASTROENTERITIS CLOSTRIDIAL [None]
  - SEPSIS [None]
